FAERS Safety Report 6242673-7 (Version None)
Quarter: 2009Q2

REPORT INFORMATION
  Report Type: 
  Country: None (occurrence: None)
  Receive Date: 20090624
  Receipt Date: 20090609
  Transmission Date: 20091009
  Serious: Yes (Hospitalization, Other)
  Sender: FDA-Public Use
  Company Number: PHHY2009FR23359

PATIENT
  Sex: Female

DRUGS (6)
  1. COTAREG [Suspect]
     Indication: HYPERTENSION
  2. ACTISKENAN [Suspect]
     Indication: PAIN
  3. NOCTRAN [Suspect]
     Indication: INSOMNIA
  4. DI-ANTALVIC [Suspect]
     Indication: PAIN
  5. DURAGESIC-100 [Suspect]
     Indication: PAIN
  6. PREVISCAN [Concomitant]
     Indication: THROMBOSIS
     Dosage: UNK
     Dates: start: 20070701

REACTIONS (10)
  - ANOREXIA NERVOSA [None]
  - BLOOD CREATININE INCREASED [None]
  - CELL DEATH [None]
  - CHOLESTASIS [None]
  - CONFUSIONAL STATE [None]
  - DISORIENTATION [None]
  - GENERAL PHYSICAL HEALTH DETERIORATION [None]
  - HYPOTONIA [None]
  - RENAL FAILURE ACUTE [None]
  - SOMNOLENCE [None]
